FAERS Safety Report 10013930 (Version 2)
Quarter: 2014Q1

REPORT INFORMATION
  Report Type: Spontaneous
  Country: US (occurrence: US)
  Receive Date: 20140316
  Receipt Date: 20140316
  Transmission Date: 20141002
  Serious: Yes (Hospitalization, Other)
  Sender: FDA-Public Use
  Company Number: US-LUNDBECK-DKLU1096021

PATIENT
  Age: 46 Year
  Sex: Female
  Weight: 94 kg

DRUGS (15)
  1. ONFI [Suspect]
     Indication: CONVULSION
     Route: 048
     Dates: start: 20130724
  2. ONFI [Suspect]
     Route: 048
  3. ONFI [Suspect]
     Route: 048
     Dates: start: 20131014
  4. ONFI [Suspect]
     Route: 048
  5. ONFI [Suspect]
     Route: 048
     Dates: start: 20131105
  6. ONFI [Suspect]
     Route: 048
     Dates: start: 20131105, end: 20131112
  7. LAMICTAL [Concomitant]
     Indication: PRODUCT USED FOR UNKNOWN INDICATION
  8. LAMICTAL [Concomitant]
  9. CARBAMAZEPINE ER [Concomitant]
     Indication: PRODUCT USED FOR UNKNOWN INDICATION
  10. CARBAMAZEPINE [Concomitant]
     Indication: PRODUCT USED FOR UNKNOWN INDICATION
  11. CYMBALTA [Concomitant]
     Indication: PRODUCT USED FOR UNKNOWN INDICATION
  12. CYMBALTA [Concomitant]
  13. SUMATRIPTAN [Concomitant]
     Indication: MIGRAINE
  14. CALCIUM WITH VITAMIN D [Concomitant]
     Indication: PRODUCT USED FOR UNKNOWN INDICATION
  15. CALCIUM WITH VITAMIN D [Concomitant]

REACTIONS (8)
  - Status epilepticus [Unknown]
  - Drug withdrawal convulsions [Recovered/Resolved with Sequelae]
  - Convulsion [Unknown]
  - Fall [Unknown]
  - Dysstasia [Unknown]
  - Gait disturbance [Not Recovered/Not Resolved]
  - Drug ineffective [Unknown]
  - Somnolence [Unknown]
